FAERS Safety Report 9359328 (Version 1)
Quarter: 2013Q2

REPORT INFORMATION
  Report Type: Spontaneous
  Country: US (occurrence: US)
  Receive Date: 20130620
  Receipt Date: 20130620
  Transmission Date: 20140414
  Serious: Yes (Hospitalization)
  Sender: FDA-Public Use
  Company Number: PHHY2013US061453

PATIENT
  Age: 30 Year
  Sex: Male

DRUGS (5)
  1. NALOXONE [Suspect]
     Indication: DETOXIFICATION
     Dosage: 80 MG, UNK
  2. NALTREXONE [Suspect]
     Indication: DETOXIFICATION
     Dosage: 100 MG, UNK
  3. PROPOFOL [Suspect]
     Indication: GENERAL ANAESTHESIA
  4. MIDAZOLAM [Suspect]
     Indication: GENERAL ANAESTHESIA
  5. ISOFLURANE [Suspect]
     Indication: GENERAL ANAESTHESIA

REACTIONS (4)
  - Mental status changes postoperative [Recovered/Resolved]
  - Pulmonary oedema [Unknown]
  - Respiratory distress [Unknown]
  - Pneumomediastinum [Unknown]
